FAERS Safety Report 8827957 (Version 1)
Quarter: 2012Q4

REPORT INFORMATION
  Report Type: 
  Country: US (occurrence: US)
  Receive Date: 20121005
  Receipt Date: 20121005
  Transmission Date: 20130627
  Serious: Yes (Other)
  Sender: FDA-Public Use
  Company Number: US-JNJFOC-20120911853

PATIENT
  Age: 68 Year
  Sex: Female
  Weight: 68.04 kg

DRUGS (1)
  1. BENADRYL ALLERGY ULTRATAB [Suspect]
     Indication: ANAPHYLACTIC SHOCK
     Dosage: half tablet once
     Route: 048
     Dates: start: 20120924, end: 20120924

REACTIONS (2)
  - Eye haemorrhage [Not Recovered/Not Resolved]
  - Off label use [Unknown]
